FAERS Safety Report 9959802 (Version 1)
Quarter: 2014Q1

REPORT INFORMATION
  Report Type: Report from Study
  Country: US (occurrence: US)
  Receive Date: 20140305
  Receipt Date: 20140305
  Transmission Date: 20141002
  Serious: No
  Sender: FDA-Public Use
  Company Number: US-ABBVIE-13P-163-1105218-00

PATIENT
  Age: 22 Year
  Sex: Female

DRUGS (5)
  1. HUMIRA [Suspect]
     Indication: PRODUCT USED FOR UNKNOWN INDICATION
     Dates: start: 20130415
  2. LIALDA [Concomitant]
     Indication: COLITIS ULCERATIVE
  3. 6 MP [Concomitant]
     Indication: COLITIS ULCERATIVE
     Dosage: DAILY
  4. VALACYCLOVIR HCL PHARMA PAC [Concomitant]
     Indication: HERPES ZOSTER
  5. LOESTRIN FE [Concomitant]
     Indication: CONTRACEPTION
     Dosage: DAILY

REACTIONS (4)
  - Injection site erythema [Recovering/Resolving]
  - Injection site swelling [Recovering/Resolving]
  - Injection site pruritus [Recovering/Resolving]
  - Injection site warmth [Recovering/Resolving]
